FAERS Safety Report 8953823 (Version 1)
Quarter: 2012Q4

REPORT INFORMATION
  Report Type: 
  Country: ES (occurrence: ES)
  Receive Date: 20121206
  Receipt Date: 20121206
  Transmission Date: 20130627
  Serious: Yes (Hospitalization, Other)
  Sender: FDA-Public Use
  Company Number: ES-PFIZER INC-2012300196

PATIENT
  Age: 12 Year
  Sex: Female

DRUGS (8)
  1. CYTARABINE [Suspect]
     Indication: T-CELL LYMPHOMA
     Route: 037
  2. VINCRISTINE SULFATE [Suspect]
     Indication: T-CELL LYMPHOMA
  3. DAUNORUBICIN HCL [Suspect]
     Indication: T-CELL LYMPHOMA
  4. METHOTREXATE SODIUM [Suspect]
     Indication: T-CELL LYMPHOMA
     Dosage: UNK
     Route: 037
  5. CYCLOPHOSPHAMIDE [Suspect]
     Indication: T-CELL LYMPHOMA
  6. PREDNISONE [Suspect]
     Indication: T-CELL LYMPHOMA
  7. ASPARAGINASE [Suspect]
     Indication: T-CELL LYMPHOMA
  8. HYDROCORTISONE [Suspect]
     Indication: T-CELL LYMPHOMA
     Route: 037

REACTIONS (3)
  - Posterior reversible encephalopathy syndrome [Recovered/Resolved]
  - Inappropriate antidiuretic hormone secretion [Recovered/Resolved]
  - Blood pressure increased [Unknown]
